FAERS Safety Report 23156655 (Version 1)
Quarter: 2023Q4

REPORT INFORMATION
  Report Type: Spontaneous
  Country: FR (occurrence: FR)
  Receive Date: 20231107
  Receipt Date: 20231107
  Transmission Date: 20240109
  Serious: No
  Sender: FDA-Public Use
  Company Number: FR-SCALL-2023-007314

PATIENT
  Age: 89 Year
  Sex: Male
  Weight: 78 kg

DRUGS (1)
  1. DUTASTERIDE [Suspect]
     Active Substance: DUTASTERIDE
     Indication: Dysuria
     Dosage: 0.5 MG QD
     Route: 048
     Dates: start: 20221215, end: 20230106

REACTIONS (1)
  - Rash maculo-papular [Not Recovered/Not Resolved]

NARRATIVE: CASE EVENT DATE: 20221222
